FAERS Safety Report 5134692-9 (Version None)
Quarter: 2006Q4

REPORT INFORMATION
  Report Type: 
  Country: None (occurrence: None)
  Receive Date: 20061002
  Receipt Date: 20061006
  Transmission Date: 20070319
  Serious: Yes (Death)
  Sender: FDA-Public Use
  Company Number: 2006123934

PATIENT
  Sex: Female

DRUGS (2)
  1. LYRICA [Suspect]
  2. OXYCODONE HCL [Concomitant]

REACTIONS (2)
  - DRUG HYPERSENSITIVITY [None]
  - RESPIRATORY ARREST [None]
